FAERS Safety Report 24139432 (Version 2)
Quarter: 2024Q3

REPORT INFORMATION
  Report Type: Spontaneous
  Country: US (occurrence: US)
  Receive Date: 20240726
  Receipt Date: 20240806
  Transmission Date: 20241016
  Serious: Yes (Other)
  Sender: JOHNSON AND JOHNSON
  Company Number: US-JNJFOC-20240766451

PATIENT
  Sex: Male
  Weight: 82.7 kg

DRUGS (16)
  1. DARATUMUMAB [Suspect]
     Active Substance: DARATUMUMAB
     Indication: Plasma cell myeloma
     Route: 065
     Dates: start: 201709, end: 201811
  2. DARATUMUMAB [Suspect]
     Active Substance: DARATUMUMAB
     Route: 065
     Dates: start: 202010, end: 202202
  3. DARATUMUMAB [Suspect]
     Active Substance: DARATUMUMAB
     Route: 065
     Dates: start: 202303, end: 202405
  4. REVLIMID [Suspect]
     Active Substance: LENALIDOMIDE
     Indication: Plasma cell myeloma
     Dates: start: 201609, end: 201612
  5. REVLIMID [Suspect]
     Active Substance: LENALIDOMIDE
     Dates: start: 201704, end: 201708
  6. POMALYST [Suspect]
     Active Substance: POMALIDOMIDE
     Indication: Plasma cell myeloma
     Route: 065
     Dates: start: 201709, end: 201811
  7. POMALYST [Suspect]
     Active Substance: POMALIDOMIDE
     Dosage: MAINTENANCE POMALIDOMIDE.
     Route: 065
     Dates: start: 202010
  8. POMALYST [Suspect]
     Active Substance: POMALIDOMIDE
     Dosage: POMALYST MAINTENANCE
     Route: 065
     Dates: start: 202104
  9. POMALYST [Suspect]
     Active Substance: POMALIDOMIDE
     Dosage: POMALYST MAINTENANCE
     Route: 065
     Dates: start: 202204, end: 202302
  10. DEXAMETHASONE [Suspect]
     Active Substance: DEXAMETHASONE
     Indication: Plasma cell myeloma
     Route: 065
     Dates: start: 201709, end: 201811
  11. DEXAMETHASONE [Suspect]
     Active Substance: DEXAMETHASONE
     Route: 065
     Dates: start: 202010, end: 202202
  12. DEXAMETHASONE [Suspect]
     Active Substance: DEXAMETHASONE
     Route: 065
     Dates: start: 202204, end: 202302
  13. DEXAMETHASONE [Suspect]
     Active Substance: DEXAMETHASONE
     Route: 065
     Dates: start: 202303, end: 202305
  14. KYPROLIS [Suspect]
     Active Substance: CARFILZOMIB
     Indication: Plasma cell myeloma
     Route: 065
     Dates: start: 202010, end: 202202
  15. KYPROLIS [Suspect]
     Active Substance: CARFILZOMIB
     Route: 065
     Dates: start: 202204, end: 202302
  16. SELINEXOR [Suspect]
     Active Substance: SELINEXOR
     Indication: Plasma cell myeloma
     Route: 065
     Dates: start: 202303, end: 202405

REACTIONS (3)
  - Plasma cell myeloma [Unknown]
  - Drug ineffective [Unknown]
  - Intentional product use issue [Unknown]
